FAERS Safety Report 24432257 (Version 1)
Quarter: 2024Q4

REPORT INFORMATION
  Report Type: Spontaneous
  Country: FR (occurrence: FR)
  Receive Date: 20241014
  Receipt Date: 20241014
  Transmission Date: 20250114
  Serious: Yes (Life-Threatening, Other)
  Sender: CELLTRION
  Company Number: None

PATIENT

DRUGS (5)
  1. INFLIXIMAB [Suspect]
     Active Substance: INFLIXIMAB
     Indication: Autoimmune colitis
     Dosage: 300 MILLIGRAM, 1/DAY
     Route: 042
     Dates: start: 20231031, end: 20231031
  2. IMFINZI [Suspect]
     Active Substance: DURVALUMAB
     Indication: Hepatocellular carcinoma
     Dosage: 1500 MILLIGRAM, EVERY 1 DAY
     Route: 042
     Dates: start: 20230919, end: 20230919
  3. METHYLPREDNISOLONE [Suspect]
     Active Substance: METHYLPREDNISOLONE
     Indication: Autoimmune colitis
     Dosage: 120 MILLIGRAM, EVERY 1 DAY
     Route: 042
     Dates: start: 20231024, end: 20231031
  4. METHYLPREDNISOLONE [Suspect]
     Active Substance: METHYLPREDNISOLONE
     Dosage: 60 MG, EVERY 1 DAY
     Route: 042
     Dates: start: 20231019, end: 20231024
  5. IMJUDO [Suspect]
     Active Substance: TREMELIMUMAB\TREMELIMUMAB-ACTL
     Indication: Hepatocellular carcinoma
     Dosage: 300 MILLIGRAM, EVERY 1 DAY
     Route: 042
     Dates: start: 20230919, end: 20230919

REACTIONS (2)
  - Large intestine perforation [Recovered/Resolved]
  - Underdose [Unknown]

NARRATIVE: CASE EVENT DATE: 20231102
